FAERS Safety Report 10288879 (Version 4)
Quarter: 2014Q3

REPORT INFORMATION
  Report Type: Report from Study
  Country: BR (occurrence: BR)
  Receive Date: 20140709
  Receipt Date: 20140908
  Transmission Date: 20150326
  Serious: Yes (Hospitalization, Other)
  Sender: FDA-Public Use
  Company Number: PHHY2014BR084548

PATIENT
  Age: 10 Year
  Sex: Female
  Weight: 36 kg

DRUGS (6)
  1. PANCREATIN [Concomitant]
     Active Substance: PANCRELIPASE
     Indication: VITAMIN SUPPLEMENTATION
     Dosage: 10 DF, UNK
  2. ASTRO [Concomitant]
     Indication: COUGH
     Dosage: 1 DF, IN MORNING
     Dates: start: 201308
  3. NASONEX [Concomitant]
     Active Substance: MOMETASONE FUROATE
     Dosage: 1 PUFF IN EACH NOSTRIL, ONCE DAILY
  4. ASTRO [Concomitant]
     Indication: CYSTIC FIBROSIS
  5. ZOTEON PODHALER [Suspect]
     Active Substance: TOBRAMYCIN
     Indication: CYSTIC FIBROSIS
     Dosage: 4 CAPSULES BID (4 IN MORNING AND 4 AT NIGHT)
     Route: 055
     Dates: start: 201405
  6. AZITHROMYCIN [Concomitant]
     Active Substance: AZITHROMYCIN ANHYDROUS
     Dosage: UNK UKN, UNK
     Route: 048

REACTIONS (4)
  - Bacterial infection [Recovering/Resolving]
  - Cystic fibrosis [Unknown]
  - Staphylococcal infection [Unknown]
  - Pseudomonas infection [Unknown]

NARRATIVE: CASE EVENT DATE: 20140704
